FAERS Safety Report 8814331 (Version 1)
Quarter: 2012Q4

REPORT INFORMATION
  Report Type: Spontaneous
  Country: CA (occurrence: None)
  Receive Date: 20120925
  Receipt Date: 20120925
  Transmission Date: 20130627
  Serious: Yes (Death)
  Sender: FDA-Public Use
  Company Number: JPI-P-025213

PATIENT
  Age: 71 Year
  Sex: Male

DRUGS (3)
  1. XYREM [Suspect]
     Route: 048
     Dates: start: 200007
  2. XYREM [Suspect]
     Dosage: 6 gm (3 gm, 2 in 1 D), Oral
     Route: 048
     Dates: start: 20070723
  3. XYREM [Suspect]
     Dosage: 7.5 gm (3.75 gm, 2 in 1 D), Oral
     Route: 048
     Dates: start: 20080123

REACTIONS (1)
  - Feeling cold [None]
